FAERS Safety Report 9009273 (Version 2)
Quarter: 2013Q1

REPORT INFORMATION
  Report Type: Spontaneous
  Country: FR (occurrence: FR)
  Receive Date: 20130111
  Receipt Date: 20130207
  Transmission Date: 20140127
  Serious: Yes (Life-Threatening, Hospitalization)
  Sender: FDA-Public Use
  Company Number: FR-GLAXOSMITHKLINE-B0857374A

PATIENT
  Age: 47 Year
  Sex: Female

DRUGS (4)
  1. DEROXAT [Suspect]
     Indication: PRODUCT USED FOR UNKNOWN INDICATION
     Dosage: 20MG PER DAY
     Route: 048
  2. TYSABRI [Suspect]
     Indication: MULTIPLE SCLEROSIS
     Dosage: 300MG MONTHLY
     Route: 042
     Dates: start: 20080527, end: 20121012
  3. LIORESAL [Concomitant]
     Dosage: 5MG TWICE PER DAY
     Route: 065
  4. MODIODAL [Concomitant]
     Dosage: 100MG FOUR TIMES PER DAY
     Route: 065

REACTIONS (2)
  - Progressive multifocal leukoencephalopathy [Not Recovered/Not Resolved]
  - Memory impairment [Not Recovered/Not Resolved]
